FAERS Safety Report 10882902 (Version 3)
Quarter: 2015Q3

REPORT INFORMATION
  Report Type: Spontaneous
  Country: US (occurrence: US)
  Receive Date: 20150303
  Receipt Date: 20150810
  Transmission Date: 20151125
  Serious: No
  Sender: FDA-Public Use
  Company Number: US-PFIZER INC-2015074923

PATIENT
  Age: 49 Year
  Sex: Female

DRUGS (12)
  1. NABUMETONE. [Concomitant]
     Active Substance: NABUMETONE
     Dosage: UNK
  2. RIBOFLAVIN [Concomitant]
     Active Substance: RIBOFLAVIN
  3. NORTRIPTYLINE [Concomitant]
     Active Substance: NORTRIPTYLINE
     Dosage: UNK
  4. XELJANZ [Suspect]
     Active Substance: TOFACITINIB CITRATE
     Indication: RHEUMATOID ARTHRITIS
     Dosage: 5 MG, 2X/DAY
     Route: 048
     Dates: start: 201502
  5. MAXALT [Concomitant]
     Active Substance: RIZATRIPTAN BENZOATE
     Dosage: UNK
  6. CORTISOL [Concomitant]
     Active Substance: HYDROCORTISONE
     Dosage: UNK
  7. BLACK COHOSH [Concomitant]
     Active Substance: BLACK COHOSH
  8. MVI [Concomitant]
     Active Substance: VITAMINS
  9. FISH OIL [Concomitant]
     Active Substance: FISH OIL
  10. CRESTOR [Concomitant]
     Active Substance: ROSUVASTATIN CALCIUM
     Dosage: UNK
  11. VITAMIN D [Concomitant]
     Active Substance: CHOLECALCIFEROL
  12. ARMOUR THYROID [Concomitant]
     Active Substance: THYROID, PORCINE\THYROID, UNSPECIFIED
     Dosage: UNK

REACTIONS (2)
  - Blood cholesterol increased [Unknown]
  - Hypertension [Unknown]

NARRATIVE: CASE EVENT DATE: 201502
